FAERS Safety Report 6660280-9 (Version None)
Quarter: 2010Q1

REPORT INFORMATION
  Report Type: 
  Country: None (occurrence: None)
  Receive Date: 20100331
  Receipt Date: 20100311
  Transmission Date: 20100710
  Serious: No
  Sender: FDA-Public Use
  Company Number: 2009BI041849

PATIENT
  Age: 66 Year
  Sex: Female

DRUGS (1)
  1. TYSABRI [Suspect]
     Indication: CROHN'S DISEASE
     Route: 042
     Dates: start: 20080519, end: 20091002

REACTIONS (4)
  - AMNESIA [None]
  - DRUG INEFFECTIVE [None]
  - HEADACHE [None]
  - MENTAL IMPAIRMENT [None]
